FAERS Safety Report 7603079-9 (Version None)
Quarter: 2011Q3

REPORT INFORMATION
  Report Type: 
  Country: None (occurrence: None)
  Receive Date: 20110712
  Receipt Date: 20110708
  Transmission Date: 20111222
  Serious: Yes (Other)
  Sender: FDA-Public Use
  Company Number: JP-BRISTOL-MYERS SQUIBB COMPANY-15863905

PATIENT
  Age: 75 Year
  Sex: Male

DRUGS (17)
  1. LAMIVUDINE(PEPFAR) [Suspect]
     Indication: HIV INFECTION
  2. CALCITRIOL [Concomitant]
  3. TRAZODONE HCL [Concomitant]
  4. RITONAVIR [Interacting]
     Indication: HIV INFECTION
  5. ATENOLOL [Concomitant]
  6. TESTOSTERONE [Concomitant]
     Dosage: PATCH
  7. LOPERAMIDE [Concomitant]
  8. RANITIDINE [Concomitant]
  9. BUDESONIDE [Interacting]
     Indication: COLITIS
     Route: 048
  10. NEVIRAPINE [Suspect]
     Indication: HIV INFECTION
  11. ATAZANAVIR [Interacting]
     Indication: HIV INFECTION
  12. DIPHENOXYLATE HCL + ATROPINE SULFATE [Concomitant]
     Dosage: 1 DF:4/DAY
  13. CHOLECALCIFEROL [Concomitant]
     Dosage: 1 DF:400 UNITS
  14. FONDAPARINUX SODIUM [Concomitant]
     Route: 058
  15. LISINOPRIL [Concomitant]
  16. LEVOTHYROXINE SODIUM [Concomitant]
  17. VARDENAFIL HYDROCHLORIDE (LEVITRA) [Concomitant]

REACTIONS (2)
  - DRUG INTERACTION [None]
  - CUSHING'S SYNDROME [None]
